FAERS Safety Report 24921718 (Version 3)
Quarter: 2025Q2

REPORT INFORMATION
  Report Type: Spontaneous
  Country: AU (occurrence: AU)
  Receive Date: 20250204
  Receipt Date: 20250417
  Transmission Date: 20250716
  Serious: Yes (Hospitalization, Other)
  Sender: MYLAN
  Company Number: AU-MYLANLABS-2025M1008841

PATIENT
  Age: 7 Decade
  Sex: Male

DRUGS (72)
  1. ACETAMINOPHEN [Suspect]
     Active Substance: ACETAMINOPHEN
     Indication: Cancer pain
     Dosage: 1 GRAM, QID
  2. ACETAMINOPHEN [Suspect]
     Active Substance: ACETAMINOPHEN
     Dosage: 1 GRAM, QID
     Route: 065
  3. ACETAMINOPHEN [Suspect]
     Active Substance: ACETAMINOPHEN
     Dosage: 1 GRAM, QID
     Route: 065
  4. ACETAMINOPHEN [Suspect]
     Active Substance: ACETAMINOPHEN
     Dosage: 1 GRAM, QID
  5. CISPLATIN [Suspect]
     Active Substance: CISPLATIN
     Indication: Pleural mesothelioma malignant
  6. CISPLATIN [Suspect]
     Active Substance: CISPLATIN
     Route: 065
  7. CISPLATIN [Suspect]
     Active Substance: CISPLATIN
     Route: 065
  8. CISPLATIN [Suspect]
     Active Substance: CISPLATIN
  9. PEMETREXED [Suspect]
     Active Substance: PEMETREXED
     Indication: Pleural mesothelioma malignant
  10. PEMETREXED [Suspect]
     Active Substance: PEMETREXED
     Route: 065
  11. PEMETREXED [Suspect]
     Active Substance: PEMETREXED
     Route: 065
  12. PEMETREXED [Suspect]
     Active Substance: PEMETREXED
  13. PARECOXIB [Suspect]
     Active Substance: PARECOXIB
     Indication: Cancer pain
     Dosage: 40 MILLIGRAM, QD
  14. PARECOXIB [Suspect]
     Active Substance: PARECOXIB
     Dosage: 40 MILLIGRAM, QD
     Route: 065
  15. PARECOXIB [Suspect]
     Active Substance: PARECOXIB
     Dosage: 40 MILLIGRAM, QD
     Route: 065
  16. PARECOXIB [Suspect]
     Active Substance: PARECOXIB
     Dosage: 40 MILLIGRAM, QD
  17. KETAMINE [Suspect]
     Active Substance: KETAMINE
     Indication: Cancer pain
  18. KETAMINE [Suspect]
     Active Substance: KETAMINE
     Route: 065
  19. KETAMINE [Suspect]
     Active Substance: KETAMINE
     Route: 065
  20. KETAMINE [Suspect]
     Active Substance: KETAMINE
  21. OXYCODONE [Suspect]
     Active Substance: OXYCODONE
     Indication: Cancer pain
     Dosage: 100 MILLIGRAM, BID (MODIFIED RELEASE)
  22. OXYCODONE [Suspect]
     Active Substance: OXYCODONE
     Dosage: 100 MILLIGRAM, BID (MODIFIED RELEASE)
  23. OXYCODONE [Suspect]
     Active Substance: OXYCODONE
     Dosage: 100 MILLIGRAM, BID (MODIFIED RELEASE)
     Route: 065
  24. OXYCODONE [Suspect]
     Active Substance: OXYCODONE
     Dosage: 100 MILLIGRAM, BID (MODIFIED RELEASE)
     Route: 065
  25. OXYCODONE [Suspect]
     Active Substance: OXYCODONE
  26. OXYCODONE [Suspect]
     Active Substance: OXYCODONE
  27. OXYCODONE [Suspect]
     Active Substance: OXYCODONE
     Route: 065
  28. OXYCODONE [Suspect]
     Active Substance: OXYCODONE
     Route: 065
  29. MORPHINE [Suspect]
     Active Substance: MORPHINE
     Indication: Cancer pain
     Dosage: 150 MILLIGRAM, BID (MODIFIED RELEASE)
  30. MORPHINE [Suspect]
     Active Substance: MORPHINE
     Dosage: 150 MILLIGRAM, BID (MODIFIED RELEASE)
  31. MORPHINE [Suspect]
     Active Substance: MORPHINE
     Dosage: 150 MILLIGRAM, BID (MODIFIED RELEASE)
     Route: 065
  32. MORPHINE [Suspect]
     Active Substance: MORPHINE
     Dosage: 150 MILLIGRAM, BID (MODIFIED RELEASE)
     Route: 065
  33. MORPHINE [Suspect]
     Active Substance: MORPHINE
  34. MORPHINE [Suspect]
     Active Substance: MORPHINE
  35. MORPHINE [Suspect]
     Active Substance: MORPHINE
     Route: 065
  36. MORPHINE [Suspect]
     Active Substance: MORPHINE
     Route: 065
  37. FENTANYL [Suspect]
     Active Substance: FENTANYL
     Indication: Cancer pain
     Dosage: 100 MICROGRAM, QH
  38. FENTANYL [Suspect]
     Active Substance: FENTANYL
     Dosage: 100 MICROGRAM, QH
  39. FENTANYL [Suspect]
     Active Substance: FENTANYL
     Dosage: 100 MICROGRAM, QH
     Route: 062
  40. FENTANYL [Suspect]
     Active Substance: FENTANYL
     Dosage: 100 MICROGRAM, QH
     Route: 062
  41. FENTANYL [Suspect]
     Active Substance: FENTANYL
  42. FENTANYL [Suspect]
     Active Substance: FENTANYL
  43. FENTANYL [Suspect]
     Active Substance: FENTANYL
     Route: 062
  44. FENTANYL [Suspect]
     Active Substance: FENTANYL
     Route: 062
  45. PREGABALIN [Suspect]
     Active Substance: PREGABALIN
     Indication: Cancer pain
     Dosage: 150 MILLIGRAM, BID
  46. PREGABALIN [Suspect]
     Active Substance: PREGABALIN
     Dosage: 150 MILLIGRAM, BID
  47. PREGABALIN [Suspect]
     Active Substance: PREGABALIN
     Dosage: 150 MILLIGRAM, BID
     Route: 065
  48. PREGABALIN [Suspect]
     Active Substance: PREGABALIN
     Dosage: 150 MILLIGRAM, BID
     Route: 065
  49. PREGABALIN [Suspect]
     Active Substance: PREGABALIN
  50. PREGABALIN [Suspect]
     Active Substance: PREGABALIN
  51. PREGABALIN [Suspect]
     Active Substance: PREGABALIN
     Route: 065
  52. PREGABALIN [Suspect]
     Active Substance: PREGABALIN
     Route: 065
  53. GABAPENTIN [Suspect]
     Active Substance: GABAPENTIN
     Indication: Cancer pain
     Dosage: 300 MILLIGRAM, TID
  54. GABAPENTIN [Suspect]
     Active Substance: GABAPENTIN
     Dosage: 300 MILLIGRAM, TID
  55. GABAPENTIN [Suspect]
     Active Substance: GABAPENTIN
     Dosage: 300 MILLIGRAM, TID
     Route: 065
  56. GABAPENTIN [Suspect]
     Active Substance: GABAPENTIN
     Dosage: 300 MILLIGRAM, TID
     Route: 065
  57. GABAPENTIN [Suspect]
     Active Substance: GABAPENTIN
  58. GABAPENTIN [Suspect]
     Active Substance: GABAPENTIN
  59. GABAPENTIN [Suspect]
     Active Substance: GABAPENTIN
     Route: 065
  60. GABAPENTIN [Suspect]
     Active Substance: GABAPENTIN
     Route: 065
  61. NIVOLUMAB [Suspect]
     Active Substance: NIVOLUMAB
     Indication: Pleural mesothelioma malignant
  62. NIVOLUMAB [Suspect]
     Active Substance: NIVOLUMAB
     Route: 065
  63. NIVOLUMAB [Suspect]
     Active Substance: NIVOLUMAB
     Route: 065
  64. NIVOLUMAB [Suspect]
     Active Substance: NIVOLUMAB
  65. IPILIMUMAB [Suspect]
     Active Substance: IPILIMUMAB
     Indication: Pleural mesothelioma malignant
  66. IPILIMUMAB [Suspect]
     Active Substance: IPILIMUMAB
     Route: 065
  67. IPILIMUMAB [Suspect]
     Active Substance: IPILIMUMAB
     Route: 065
  68. IPILIMUMAB [Suspect]
     Active Substance: IPILIMUMAB
  69. LIDOCAINE [Suspect]
     Active Substance: LIDOCAINE
     Indication: Cancer pain
     Dosage: UNK, QD
  70. LIDOCAINE [Suspect]
     Active Substance: LIDOCAINE
     Dosage: UNK, QD
     Route: 062
  71. LIDOCAINE [Suspect]
     Active Substance: LIDOCAINE
     Dosage: UNK, QD
     Route: 062
  72. LIDOCAINE [Suspect]
     Active Substance: LIDOCAINE
     Dosage: UNK, QD

REACTIONS (7)
  - Drug ineffective [Unknown]
  - Cognitive disorder [Unknown]
  - Nervous system disorder [Unknown]
  - Disease progression [Unknown]
  - Drug intolerance [Unknown]
  - Confusional state [Unknown]
  - Somnolence [Unknown]
